FAERS Safety Report 7776719-1 (Version None)
Quarter: 2011Q3

REPORT INFORMATION
  Report Type: 
  Country: None (occurrence: None)
  Receive Date: 20110926
  Receipt Date: 20110920
  Transmission Date: 20111222
  Serious: Yes (Other)
  Sender: FDA-Public Use
  Company Number: DK-JNJFOC-20110908103

PATIENT
  Age: 59 Year
  Sex: Male

DRUGS (1)
  1. USTEKINUMAB [Suspect]
     Indication: DERMATITIS CONTACT
     Dosage: WEEK 0 AND 4
     Route: 058

REACTIONS (3)
  - HERPES ZOSTER [None]
  - DRUG INEFFECTIVE [None]
  - OFF LABEL USE [None]
